FAERS Safety Report 13085090 (Version 1)
Quarter: 2017Q1

REPORT INFORMATION
  Report Type: Spontaneous
  Country: GB (occurrence: GB)
  Receive Date: 20170104
  Receipt Date: 20170104
  Transmission Date: 20170428
  Serious: Yes (Life-Threatening, Other)
  Sender: FDA-Public Use
  Company Number: GB-PFIZER INC-2016603033

PATIENT
  Age: 61 Year
  Sex: Male

DRUGS (2)
  1. METHOTREXATE SODIUM. [Suspect]
     Active Substance: METHOTREXATE SODIUM
     Indication: BLADDER TRANSITIONAL CELL CARCINOMA
     Dosage: 2.5 MG, DAILY
     Route: 048
  2. NAPROXEN. [Interacting]
     Active Substance: NAPROXEN
     Dosage: UNK

REACTIONS (3)
  - Cytopenia [Recovering/Resolving]
  - Bone marrow failure [Recovering/Resolving]
  - Drug interaction [Unknown]
